FAERS Safety Report 7878938-2 (Version None)
Quarter: 2011Q4

REPORT INFORMATION
  Report Type: 
  Country: None (occurrence: None)
  Receive Date: 20111021
  Receipt Date: 20110729
  Transmission Date: 20120403
  Serious: Yes (Other)
  Sender: FDA-Public Use
  Company Number: ALL1-2011-02523

PATIENT
  Sex: Male
  Weight: 22.7 kg

DRUGS (1)
  1. VYVANSE [Suspect]
     Indication: ATTENTION DEFICIT/HYPERACTIVITY DISORDER
     Dosage: 20 MG, 1X/DAY: QD, ORAL
     Route: 048
     Dates: start: 20100101, end: 20110701

REACTIONS (2)
  - HALLUCINATION [None]
  - AGGRESSION [None]
